FAERS Safety Report 12476803 (Version 1)
Quarter: 2016Q2

REPORT INFORMATION
  Report Type: Spontaneous
  Country: US (occurrence: US)
  Receive Date: 20160617
  Receipt Date: 20160617
  Transmission Date: 20160815
  Serious: Yes (Hospitalization)
  Sender: FDA-Public Use
  Company Number: US-PFIZER INC-2016298377

PATIENT
  Age: 82 Year
  Sex: Male

DRUGS (1)
  1. AXITINIB [Suspect]
     Active Substance: AXITINIB
     Indication: METASTATIC RENAL CELL CARCINOMA
     Dosage: UNK

REACTIONS (5)
  - Metabolic acidosis [Unknown]
  - Hypoglycaemia [Recovering/Resolving]
  - Hypocalcaemia [Recovering/Resolving]
  - Vitamin D decreased [Unknown]
  - Hyperparathyroidism secondary [Unknown]
